FAERS Safety Report 22039613 (Version 2)
Quarter: 2023Q2

REPORT INFORMATION
  Report Type: Report from Study
  Country: US (occurrence: US)
  Receive Date: 20230227
  Receipt Date: 20230418
  Transmission Date: 20230721
  Serious: Yes (Death, Other)
  Sender: FDA-Public Use
  Company Number: US-ABBVIE-4319628

PATIENT
  Age: 69 Year
  Sex: Male
  Weight: 81 kg

DRUGS (9)
  1. CREON [Suspect]
     Active Substance: PANCRELIPASE AMYLASE\PANCRELIPASE LIPASE\PANCRELIPASE PROTEASE
     Indication: Pancreatic carcinoma
     Dosage: TIME INTERVAL: 0.125 DAYS: 3 CAPSULES WITH MEAL AND 1 CAPSULE PER SNACK?FORM STRENGTH 36000 UNIT
     Route: 048
     Dates: start: 202206, end: 20230220
  2. PEPCID [Concomitant]
     Active Substance: FAMOTIDINE
     Indication: Gastrointestinal disorder prophylaxis
  3. LIPITOR [Concomitant]
     Active Substance: ATORVASTATIN CALCIUM
     Indication: Cardiac valve disease
  4. CLARINEX [Concomitant]
     Active Substance: DESLORATADINE
     Indication: Hypersensitivity
  5. VOLTAREN [Concomitant]
     Active Substance: DICLOFENAC SODIUM
     Indication: Pain
  6. PROTONIX [Concomitant]
     Active Substance: PANTOPRAZOLE SODIUM
     Indication: Gastrointestinal disorder prophylaxis
  7. MONTELUKAST [Concomitant]
     Active Substance: MONTELUKAST SODIUM
     Indication: Asthma
  8. ASPIRIN [Concomitant]
     Active Substance: ASPIRIN
     Indication: Pain
  9. CHONDROITIN SULFATE (BOVINE)\GLUCOSAMINE HYDROCHLORIDE [Concomitant]
     Active Substance: CHONDROITIN SULFATE (BOVINE)\GLUCOSAMINE HYDROCHLORIDE
     Indication: Supplementation therapy

REACTIONS (10)
  - Pancreatic carcinoma [Fatal]
  - Disorientation [Not Recovered/Not Resolved]
  - Oxygen saturation decreased [Recovered/Resolved]
  - Spinal cord neoplasm [Not Recovered/Not Resolved]
  - Hypotension [Recovered/Resolved]
  - Vital functions abnormal [Recovered/Resolved]
  - Cervical vertebral fracture [Not Recovered/Not Resolved]
  - Back pain [Not Recovered/Not Resolved]
  - Pneumonia [Recovered/Resolved]
  - Aggression [Recovered/Resolved]

NARRATIVE: CASE EVENT DATE: 20221001
